FAERS Safety Report 8032084-6 (Version None)
Quarter: 2012Q1

REPORT INFORMATION
  Report Type: 
  Country: None (occurrence: None)
  Receive Date: 20120109
  Receipt Date: 20110223
  Transmission Date: 20120608
  Serious: No
  Sender: FDA-Public Use
  Company Number: US-ABBOTT-11P-163-0707197-00

PATIENT
  Sex: Male
  Weight: 108.96 kg

DRUGS (9)
  1. TESTIM [Suspect]
     Indication: BLOOD TESTOSTERONE DECREASED
     Route: 062
     Dates: start: 20110122
  2. VICTOZA [Suspect]
     Indication: DIABETES MELLITUS
  3. VICODIN [Suspect]
     Indication: POSTOPERATIVE ANALGESIA
     Dates: start: 20100101
  4. TESTIM [Suspect]
  5. CELEBREX [Concomitant]
     Indication: ARTHRITIS
     Dates: start: 20100101
  6. JANUMET [Concomitant]
     Indication: DIABETES MELLITUS
  7. DESVENLAFAXINE [Concomitant]
     Indication: DEPRESSION
     Dates: start: 20100101
  8. NOVOLOG [Concomitant]
     Indication: DIABETES MELLITUS
  9. LANTUS [Concomitant]
     Indication: DIABETES MELLITUS

REACTIONS (6)
  - ANXIETY [None]
  - NERVOUSNESS [None]
  - NAUSEA [None]
  - ENERGY INCREASED [None]
  - FEELING JITTERY [None]
  - INSOMNIA [None]
